FAERS Safety Report 23566100 (Version 1)
Quarter: 2024Q1

REPORT INFORMATION
  Report Type: Report from Study
  Country: TR (occurrence: TR)
  Receive Date: 20240226
  Receipt Date: 20240226
  Transmission Date: 20240410
  Serious: Yes (Death)
  Sender: FDA-Public Use
  Company Number: TR-ABBVIE-5652805

PATIENT
  Age: 78 Year
  Sex: Male
  Weight: 80 kg

DRUGS (9)
  1. CARBIDOPA\LEVODOPA [Suspect]
     Active Substance: CARBIDOPA\LEVODOPA
     Indication: Parkinson^s disease
     Dosage: MORNING DOSE (ML): 7.40 CONTINUOUS DOSE (ML): 4.00 EXTRA DOSE (ML): 2.00
     Route: 050
     Dates: start: 20180409
  2. CARBIDOPA\LEVODOPA [Suspect]
     Active Substance: CARBIDOPA\LEVODOPA
  3. Panto [Concomitant]
     Indication: Gastrointestinal disorder prophylaxis
     Dosage: 40 MILLIGRAM
     Route: 048
     Dates: start: 20180410
  4. BENSERAZIDE HYDROCHLORIDE\LEVODOPA [Concomitant]
     Active Substance: BENSERAZIDE HYDROCHLORIDE\LEVODOPA
     Indication: Parkinson^s disease
     Dosage: FORM STRENGTH: 125 MILLIGRAM
     Route: 048
     Dates: start: 2008
  5. MELATONIN [Concomitant]
     Active Substance: MELATONIN
     Indication: Sleep disorder
     Route: 048
     Dates: start: 20180301
  6. AMANTADINE SULFATE [Concomitant]
     Active Substance: AMANTADINE SULFATE
     Indication: Parkinson^s disease
     Dosage: FORM STRENGTH: 100 MILLIGRAM
     Route: 048
  7. MOTILIUM [Concomitant]
     Active Substance: DOMPERIDONE
     Indication: Parkinson^s disease
     Route: 048
     Dates: start: 2008
  8. SEROQUEL [Concomitant]
     Active Substance: QUETIAPINE FUMARATE
     Indication: Sleep disorder
     Dosage: FORM STRENGTH: 25 MILLIGRAM
     Route: 048
     Dates: start: 2017
  9. MIRABEGRON [Concomitant]
     Active Substance: MIRABEGRON
     Indication: Prostatic disorder
     Dosage: FORM STRENGTH: 50 MILLIGRAM
     Route: 048
     Dates: start: 2017

REACTIONS (2)
  - Drowning [Fatal]
  - Fall [Recovered/Resolved]

NARRATIVE: CASE EVENT DATE: 20240221
